FAERS Safety Report 18098930 (Version 1)
Quarter: 2020Q3

REPORT INFORMATION
  Report Type: Spontaneous
  Country: GB (occurrence: GB)
  Receive Date: 20200731
  Receipt Date: 20200731
  Transmission Date: 20201103
  Serious: Yes (Other)
  Sender: FDA-Public Use
  Company Number: NVSC2020GB213726

PATIENT

DRUGS (1)
  1. ENTRESTO [Suspect]
     Active Substance: SACUBITRIL\VALSARTAN
     Indication: PRODUCT USED FOR UNKNOWN INDICATION
     Dosage: UNK, BID, 24/26MG
     Route: 065
     Dates: start: 20190806, end: 20190903

REACTIONS (4)
  - Hypotension [Recovered/Resolved]
  - Dyspnoea [Recovered/Resolved]
  - Hyperkalaemia [Recovered/Resolved]
  - Renal impairment [Recovered/Resolved]
